FAERS Safety Report 5370393-X (Version None)
Quarter: 2007Q2

REPORT INFORMATION
  Report Type: 
  Country: None (occurrence: None)
  Receive Date: 20070626
  Receipt Date: 20070112
  Transmission Date: 20071010
  Serious: No
  Sender: FDA-Public Use
  Company Number: US-AMGEN-US206683

PATIENT
  Sex: Female

DRUGS (12)
  1. ARANESP [Suspect]
     Indication: DIALYSIS
     Route: 065
     Dates: start: 20051001
  2. RENAGEL [Concomitant]
     Route: 065
  3. VICODIN [Concomitant]
     Route: 065
  4. AVANDIA [Concomitant]
     Route: 065
  5. MIDODRINE HYDROCHLORIDE [Concomitant]
     Route: 065
  6. VITAMINS NOS [Concomitant]
  7. PLAVIX [Concomitant]
     Route: 065
  8. ACIPHEX [Concomitant]
     Route: 065
  9. ZELNORM [Concomitant]
     Route: 065
  10. HEPARIN [Concomitant]
     Route: 065
  11. HECTORAL [Concomitant]
     Route: 065
  12. TYLENOL [Concomitant]

REACTIONS (2)
  - HAEMOGLOBIN INCREASED [None]
  - MALAISE [None]
